FAERS Safety Report 9934430 (Version 1)
Quarter: 2014Q1

REPORT INFORMATION
  Report Type: Report from Study
  Country: US (occurrence: US)
  Receive Date: 20140228
  Receipt Date: 20140228
  Transmission Date: 20141002
  Serious: Yes (Life-Threatening, Hospitalization)
  Sender: FDA-Public Use
  Company Number: US-009507513-1402USA013655

PATIENT
  Age: 54 Year
  Sex: Male

DRUGS (17)
  1. DEXAMETHASONE [Suspect]
     Indication: SWOLLEN TONGUE
     Dosage: UNK
     Dates: start: 20130210
  2. ONDANSETRON HYDROCHLORIDE [Suspect]
     Dosage: 8 MG, PRN (24 MG)
  3. ACETAMINOPHEN [Suspect]
     Dosage: 325-650 MG
  4. MIRALAX [Suspect]
     Indication: CONSTIPATION
     Dosage: 17 G, UNK
     Route: 048
     Dates: start: 20130409
  5. CETUXIMAB [Suspect]
     Indication: HEAD AND NECK CANCER
     Dosage: 912 MG, EVERY WEEK
     Route: 042
     Dates: start: 20130430, end: 20130501
  6. FENTANYL [Concomitant]
     Indication: PAIN
     Dosage: 100 MICROGRAM, 1 IN 72 HOUR
     Route: 062
  7. MORPHINE [Concomitant]
     Indication: PAIN
     Dosage: UNK
     Route: 048
     Dates: start: 20130418
  8. NYSTATIN [Concomitant]
     Dosage: UNK
     Route: 048
     Dates: start: 20130212
  9. RANITIDINE [Concomitant]
     Indication: ABDOMINAL DISCOMFORT
     Dosage: 150 MG, UNK
     Route: 048
     Dates: start: 20130409
  10. COMPAZINE [Concomitant]
     Indication: NAUSEA
     Dosage: 10 MG, UNK
     Route: 048
     Dates: start: 20130409
  11. LORAZEPAM [Concomitant]
     Dosage: 1 MG, PRN
  12. POLYETHYLENE GLYCOL [Concomitant]
     Dosage: UNK, PRN
     Dates: start: 20130409
  13. PROCHLORPERAZINE [Concomitant]
     Dosage: 10 MG, PRN
     Dates: start: 20130409
  14. ENSURE PLUS [Concomitant]
     Dosage: 9 CANS DAILY VIA G TUBE
     Route: 048
  15. BISACODYL [Concomitant]
     Dosage: 10 MG SUPPOSITORY
     Route: 054
  16. SODIUM CHLORIDE [Concomitant]
     Dosage: 0.05-0.1 ML (0.9%)
  17. SORBITOL [Concomitant]
     Dosage: 30 ML, UNK

REACTIONS (1)
  - Anaphylactic reaction [Recovered/Resolved]
